FAERS Safety Report 6237906-7 (Version None)
Quarter: 2009Q2

REPORT INFORMATION
  Report Type: 
  Country: None (occurrence: None)
  Receive Date: 20090621
  Receipt Date: 20090615
  Transmission Date: 20091009
  Serious: Yes (Other)
  Sender: FDA-Public Use
  Company Number: US-ALLERGAN-0906633US

PATIENT
  Age: 80 Year
  Sex: Female

DRUGS (6)
  1. SANCTURA XR [Suspect]
     Indication: MICTURITION URGENCY
     Dosage: 60 MG, QAM
     Route: 048
     Dates: start: 20090407, end: 20090513
  2. SANCTURA XR [Suspect]
     Indication: HYPERTONIC BLADDER
  3. ARICEPT [Concomitant]
     Indication: MEMORY IMPAIRMENT
  4. NAMENDA [Concomitant]
     Indication: MEMORY IMPAIRMENT
  5. REMERON [Concomitant]
     Indication: ANTIDEPRESSANT THERAPY
  6. TRIMETHOPRIM [Concomitant]
     Indication: URINARY TRACT INFECTION

REACTIONS (6)
  - ANXIETY [None]
  - CONFUSIONAL STATE [None]
  - HALLUCINATION [None]
  - NERVOUSNESS [None]
  - ORAL PAIN [None]
  - TONGUE DISCOLOURATION [None]
